FAERS Safety Report 8885644 (Version 1)
Quarter: 2012Q4

REPORT INFORMATION
  Report Type: 
  Country: US (occurrence: US)
  Receive Date: 20121101
  Receipt Date: 20121101
  Transmission Date: 20130627
  Serious: Yes (Other)
  Sender: FDA-Public Use
  Company Number: US-PFIZER INC-2012269330

PATIENT
  Age: 68 Year
  Sex: Female
  Weight: 72.56 kg

DRUGS (1)
  1. ADVIL [Suspect]
     Indication: PAIN
     Dosage: 200 mg, 1x/day
     Route: 048
     Dates: start: 20121025, end: 20121025

REACTIONS (1)
  - Choking [Unknown]
